FAERS Safety Report 15268240 (Version 1)
Quarter: 2018Q3

REPORT INFORMATION
  Report Type: Spontaneous
  Country: US (occurrence: US)
  Receive Date: 20180725
  Receipt Date: 20180725
  Transmission Date: 20181010
  Serious: Yes (Life-Threatening, Hospitalization)
  Sender: FDA-Public Use
  Company Number: None

PATIENT
  Age: 58 Year
  Sex: Male
  Weight: 90.72 kg

DRUGS (9)
  1. ISONIAZID. [Suspect]
     Active Substance: ISONIAZID
     Indication: ARTHRITIS
     Dosage: ?          QUANTITY:1 PILL;?
     Route: 048
     Dates: start: 20180518, end: 20180613
  2. AMOXICILLIN. [Concomitant]
     Active Substance: AMOXICILLIN
  3. CLARITHROMYCIN. [Concomitant]
     Active Substance: CLARITHROMYCIN
  4. TRAMADOL. [Concomitant]
     Active Substance: TRAMADOL
  5. PANTOPRAZOLE SODIUM. [Concomitant]
     Active Substance: PANTOPRAZOLE SODIUM
  6. RIFAMPIN. [Concomitant]
     Active Substance: RIFAMPIN
  7. PREDNISONE. [Concomitant]
     Active Substance: PREDNISONE
  8. PYRIDOXINE [Concomitant]
     Active Substance: PYRIDOXINE
  9. LEVOTHYROXINE. [Concomitant]
     Active Substance: LEVOTHYROXINE

REACTIONS (5)
  - Headache [None]
  - Abdominal pain upper [None]
  - Body temperature increased [None]
  - Photophobia [None]
  - Dizziness [None]

NARRATIVE: CASE EVENT DATE: 20180613
